FAERS Safety Report 8031751-8 (Version None)
Quarter: 2012Q1

REPORT INFORMATION
  Report Type: 
  Country: None (occurrence: None)
  Receive Date: 20120109
  Receipt Date: 20120105
  Transmission Date: 20120608
  Serious: No
  Sender: FDA-Public Use
  Company Number: US-BAYER-2012-002453

PATIENT
  Sex: Female
  Weight: 68.027 kg

DRUGS (2)
  1. ALEVE (CAPLET) [Suspect]
     Dosage: 2 U, QD
     Route: 048
     Dates: start: 20111222, end: 20120105
  2. VITAMIN TAB [Concomitant]

REACTIONS (1)
  - MUSCLE SPASMS [None]
